FAERS Safety Report 7082579-7 (Version None)
Quarter: 2010Q3

REPORT INFORMATION
  Report Type: 
  Country: None (occurrence: None)
  Receive Date: 20100929
  Receipt Date: 20100610
  Transmission Date: 20110219
  Serious: No
  Sender: FDA-Public Use
  Company Number: US-WYE-H15863710

PATIENT
  Age: 41 Year
  Sex: Female
  Weight: 49.94 kg

DRUGS (7)
  1. PRISTIQ [Suspect]
     Indication: ANXIETY
     Dosage: 50 MG 1X PER 1 DAY, ORAL 50 MG 1X PER DAY, ORAL, 100 MG 1X PER DAY, ORAL
     Route: 048
     Dates: start: 20091201, end: 20091201
  2. PRISTIQ [Suspect]
     Indication: MAJOR DEPRESSION
     Dosage: 50 MG 1X PER 1 DAY, ORAL 50 MG 1X PER DAY, ORAL, 100 MG 1X PER DAY, ORAL
     Route: 048
     Dates: start: 20091201, end: 20091201
  3. PRISTIQ [Suspect]
     Indication: ANXIETY
     Dosage: 50 MG 1X PER 1 DAY, ORAL 50 MG 1X PER DAY, ORAL, 100 MG 1X PER DAY, ORAL
     Route: 048
     Dates: start: 20091201, end: 20100501
  4. PRISTIQ [Suspect]
     Indication: MAJOR DEPRESSION
     Dosage: 50 MG 1X PER 1 DAY, ORAL 50 MG 1X PER DAY, ORAL, 100 MG 1X PER DAY, ORAL
     Route: 048
     Dates: start: 20091201, end: 20100501
  5. PRISTIQ [Suspect]
     Indication: ANXIETY
     Dosage: 50 MG 1X PER 1 DAY, ORAL 50 MG 1X PER DAY, ORAL, 100 MG 1X PER DAY, ORAL
     Route: 048
     Dates: start: 20100501
  6. PRISTIQ [Suspect]
     Indication: MAJOR DEPRESSION
     Dosage: 50 MG 1X PER 1 DAY, ORAL 50 MG 1X PER DAY, ORAL, 100 MG 1X PER DAY, ORAL
     Route: 048
     Dates: start: 20100501
  7. ATIVAN [Concomitant]

REACTIONS (9)
  - CONSTIPATION [None]
  - DECREASED APPETITE [None]
  - DRY EYE [None]
  - FATIGUE [None]
  - FOOD CRAVING [None]
  - HEADACHE [None]
  - MICTURITION FREQUENCY DECREASED [None]
  - NAUSEA [None]
  - POLLAKIURIA [None]
